FAERS Safety Report 19136320 (Version 1)
Quarter: 2021Q2

REPORT INFORMATION
  Report Type: Spontaneous
  Country: US (occurrence: US)
  Receive Date: 20210415
  Receipt Date: 20210415
  Transmission Date: 20210717
  Serious: No
  Sender: FDA-Public Use
  Company Number: US-JNJFOC-20210414670

PATIENT
  Age: 9 Decade
  Sex: Female

DRUGS (1)
  1. WOMENS ROGAINE [Suspect]
     Active Substance: MINOXIDIL
     Indication: ALOPECIA
     Dosage: AS DIRECTED WITH DROPPER
     Route: 061
     Dates: start: 2020

REACTIONS (3)
  - Alopecia [Recovered/Resolved]
  - Application site pruritus [Recovered/Resolved]
  - Trichorrhexis [Recovered/Resolved]

NARRATIVE: CASE EVENT DATE: 2020
